FAERS Safety Report 24737231 (Version 1)
Quarter: 2024Q4

REPORT INFORMATION
  Report Type: Spontaneous
  Country: US (occurrence: None)
  Receive Date: 20241213
  Receipt Date: 20241213
  Transmission Date: 20250115
  Serious: Yes (Hospitalization)
  Sender: Public
  Company Number: None

PATIENT
  Age: 67 Year
  Sex: Male
  Weight: 80 kg

DRUGS (5)
  1. HYDROCHLOROTHIAZIDE\LOSARTAN POTASSIUM [Suspect]
     Active Substance: HYDROCHLOROTHIAZIDE\LOSARTAN POTASSIUM
     Indication: Hypertension
     Dosage: ORAL
     Route: 048
     Dates: start: 20171120, end: 20240801
  2. DULOXETINE HYDROCHLORIDE [Suspect]
     Active Substance: DULOXETINE HYDROCHLORIDE
     Dosage: 90.00 MG DAILY ORAL?
     Route: 048
  3. NAPROXEN [Suspect]
     Active Substance: NAPROXEN
  4. MELOXICAM [Suspect]
     Active Substance: MELOXICAM
  5. TRAMADOL [Suspect]
     Active Substance: TRAMADOL

REACTIONS (11)
  - Hyponatraemia [None]
  - Nausea [None]
  - Vomiting [None]
  - Arrhythmia [None]
  - Fall [None]
  - Electrolyte imbalance [None]
  - Anaemia [None]
  - Blood potassium increased [None]
  - Weight decreased [None]
  - Hepatic lesion [None]
  - Neoplasm malignant [None]

NARRATIVE: CASE EVENT DATE: 20240802
